FAERS Safety Report 22742728 (Version 5)
Quarter: 2023Q4

REPORT INFORMATION
  Report Type: Spontaneous
  Country: US (occurrence: US)
  Receive Date: 20230724
  Receipt Date: 20231103
  Transmission Date: 20240110
  Serious: No
  Sender: FDA-Public Use
  Company Number: US-PFIZER INC-PV202300122162

PATIENT
  Age: 13 Year
  Sex: Male
  Weight: 56.236 kg

DRUGS (1)
  1. GENOTROPIN [Suspect]
     Active Substance: SOMATROPIN
     Dosage: 2.4 MG, DAILY
     Dates: start: 20230624

REACTIONS (2)
  - Wrong technique in device usage process [Unknown]
  - Device issue [Unknown]
